FAERS Safety Report 4648248-5 (Version None)
Quarter: 2005Q2

REPORT INFORMATION
  Report Type: 
  Country: None (occurrence: None)
  Receive Date: 20050331
  Receipt Date: 20050209
  Transmission Date: 20051028
  Serious: No
  Sender: FDA-Public Use
  Company Number: 05P-163-0290039-00

PATIENT
  Age: 55 Year
  Sex: Female

DRUGS (6)
  1. HUMIRA [Suspect]
     Indication: RHEUMATOID ARTHRITIS
     Dosage: 40 MG, 2 IN 1 WK; 1 IN  2 WKS
     Route: 058
     Dates: start: 20041101
  2. HUMIRA [Suspect]
     Indication: RHEUMATOID ARTHRITIS
     Dosage: 40 MG, 2 IN 1 WK; 1 IN  2 WKS
     Route: 058
     Dates: start: 20050207
  3. METHOTREXATE SODIUM [Concomitant]
  4. FOLIC ACID [Concomitant]
  5. BUCINDOLOL HYDROCHLORIDE [Concomitant]
  6. PROVELLA-14 [Concomitant]

REACTIONS (1)
  - DRUG INEFFECTIVE [None]
